FAERS Safety Report 9575237 (Version 17)
Quarter: 2016Q2

REPORT INFORMATION
  Report Type: Spontaneous
  Country: US (occurrence: US)
  Receive Date: 20131001
  Receipt Date: 20160420
  Transmission Date: 20160815
  Serious: Yes (Death, Hospitalization, Other)
  Sender: FDA-Public Use
  Company Number: US-GLAXOSMITHKLINE-A1043515A

PATIENT
  Age: 66 Year
  Sex: Female

DRUGS (17)
  1. FLOLAN [Suspect]
     Active Substance: EPOPROSTENOL SODIUM
     Dosage: 28 NG/KG/MIN, CONTINUOUSLY
     Dates: start: 20130911
  2. FLOLAN [Suspect]
     Active Substance: EPOPROSTENOL SODIUM
     Dosage: 28 NG/KG/MIN CONTINUOUS; CONCENTRATION: 30,000 NG/ML; PUMP RATE: 77 ML/ DAY; VIAL STRENGTH: 1.5 MG
     Dates: start: 20130911
  3. FLOLAN [Suspect]
     Active Substance: EPOPROSTENOL SODIUM
     Indication: PULMONARY ARTERIAL HYPERTENSION
     Dosage: DOSE: 11 NG/KG/MIN CONTINUOUSLYCONCENTRATION: 15,000 NG/MLVIAL STRENGTH: 1.5 MGFU:DOSE: 25 NG/K[...]
     Route: 042
     Dates: start: 20130911
  4. FLOLAN [Suspect]
     Active Substance: EPOPROSTENOL SODIUM
     Dosage: UNK
     Dates: start: 20130911
  5. FLOLAN [Suspect]
     Active Substance: EPOPROSTENOL SODIUM
     Dosage: 25 NG/KG/MIN CONTINUOUS; CONCENTRATION: 30,000 NG/ML; PUMP RATE: 68 ML/ DAY; VIAL STRENGTH: 1.5 MG
     Dates: start: 20130911
  6. FLOLAN [Suspect]
     Active Substance: EPOPROSTENOL SODIUM
     Dosage: 25 NG/KG/MIN (CONCENTRATION 30,000 NG/ML, PUMP RATE 68 ML/DAY, VIAL STRENGTH 1.5), CO
     Route: 042
     Dates: start: 20130911
  7. SILDENAFIL. [Concomitant]
     Active Substance: SILDENAFIL
  8. REVATIO [Concomitant]
     Active Substance: SILDENAFIL CITRATE
  9. FLOLAN [Suspect]
     Active Substance: EPOPROSTENOL SODIUM
     Indication: PULMONARY ARTERIAL HYPERTENSION
     Dosage: UNK
     Dates: start: 20130911
  10. FLOLAN [Suspect]
     Active Substance: EPOPROSTENOL SODIUM
     Dosage: 25 NG/KG/MIN CONTINUOUS; CONCENTRATION: 30,000 NG/ML; PUMP RATE: 68 ML/ DAY; VIAL STRENGTH: 1.5 MG
     Dates: start: 20130911
  11. FLOLAN [Suspect]
     Active Substance: EPOPROSTENOL SODIUM
     Dosage: 23 NG/KG/MIN, CO
     Route: 042
     Dates: start: 20150710
  12. FLOLAN [Suspect]
     Active Substance: EPOPROSTENOL SODIUM
     Dosage: 25 NG/KG/MIN, CO
     Route: 042
  13. ADEMPAS [Concomitant]
     Active Substance: RIOCIGUAT
  14. FLOLAN [Suspect]
     Active Substance: EPOPROSTENOL SODIUM
     Dosage: 28 NG/KG/MIN (CONCENTRATION 30,000 NG/ML, PUMP RATE 77 ML/DAY, VIAL STRENGTH 1.5 MG), CO
     Route: 042
  15. LETAIRIS [Concomitant]
     Active Substance: AMBRISENTAN
  16. FLOLAN [Suspect]
     Active Substance: EPOPROSTENOL SODIUM
     Dosage: 26 UNK, UNK
     Dates: start: 20130911
  17. FLOLAN [Suspect]
     Active Substance: EPOPROSTENOL SODIUM
     Dosage: 25 NG/KG/MIN
     Route: 042

REACTIONS (18)
  - Retinal detachment [Unknown]
  - Pneumonia [Unknown]
  - Hospitalisation [Unknown]
  - White blood cell count decreased [Unknown]
  - Cough [Not Recovered/Not Resolved]
  - Death [Fatal]
  - Weight decreased [Unknown]
  - Catheter site erythema [Recovering/Resolving]
  - Weight increased [Unknown]
  - Clostridium difficile infection [Unknown]
  - Hypotension [Unknown]
  - Erythema [Unknown]
  - Diarrhoea [Unknown]
  - Pruritus [Unknown]
  - Back pain [Unknown]
  - Dyspnoea [Unknown]
  - Septic shock [Recovering/Resolving]
  - Oedema [Unknown]

NARRATIVE: CASE EVENT DATE: 20150902
